FAERS Safety Report 7301316-1 (Version None)
Quarter: 2011Q1

REPORT INFORMATION
  Report Type: 
  Country: None (occurrence: None)
  Receive Date: 20110218
  Receipt Date: 20110216
  Transmission Date: 20110831
  Serious: Yes (Death, Other)
  Sender: FDA-Public Use
  Company Number: NO-PFIZER INC-2005079268

PATIENT
  Sex: Female

DRUGS (1)
  1. ZOLOFT [Suspect]
     Route: 048

REACTIONS (4)
  - SEPSIS [None]
  - THROMBOCYTOPENIA [None]
  - LEUKOPENIA [None]
  - LEUKAEMIA [None]
